FAERS Safety Report 8650950 (Version 6)
Quarter: 2012Q4

REPORT INFORMATION
  Report Type: Report from Study
  Country: US (occurrence: US)
  Receive Date: 20120705
  Receipt Date: 20121127
  Transmission Date: 20130627
  Serious: Yes (Hospitalization)
  Sender: FDA-Public Use
  Company Number: US-JNJFOC-20120603820

PATIENT
  Age: 41 None
  Sex: Female
  Weight: 53.52 kg

DRUGS (5)
  1. DOXORUBICIN HYDROCHLORIDE (DOXIL) [Suspect]
     Indication: OVARIAN CANCER
     Dosage: total dose of 60 mg
     Route: 042
     Dates: start: 20120530, end: 20120530
  2. DOXORUBICIN HYDROCHLORIDE (DOXIL) [Suspect]
     Indication: OVARIAN CANCER
     Dosage: total dose of 60 mg
     Route: 042
     Dates: start: 20120628, end: 20120628
  3. DOXORUBICIN HYDROCHLORIDE (DOXIL) [Suspect]
     Indication: OVARIAN CANCER
     Dosage: total dose of 60 mg
     Route: 042
     Dates: start: 20120727, end: 20120727
  4. DOXORUBICIN HYDROCHLORIDE (DOXIL) [Suspect]
     Indication: OVARIAN CANCER
     Dosage: total dose of 60 mg
     Route: 042
     Dates: start: 20120824, end: 20120824
  5. DILAUDID [Concomitant]
     Indication: CANCER PAIN
     Route: 048

REACTIONS (8)
  - Intestinal obstruction [Not Recovered/Not Resolved]
  - Vomiting [Not Recovered/Not Resolved]
  - Tenderness [Not Recovered/Not Resolved]
  - Blister [Recovered/Resolved]
  - Rash [Not Recovered/Not Resolved]
  - Back pain [Not Recovered/Not Resolved]
  - Abdominal pain [Not Recovered/Not Resolved]
  - Dry skin [Not Recovered/Not Resolved]
